FAERS Safety Report 18840266 (Version 1)
Quarter: 2021Q1

REPORT INFORMATION
  Report Type: Spontaneous
  Country: US (occurrence: US)
  Receive Date: 20210203
  Receipt Date: 20210203
  Transmission Date: 20210419
  Serious: No
  Sender: FDA-Public Use
  Company Number: US-PRAGMA-2020-US-017597

PATIENT
  Sex: Female

DRUGS (2)
  1. KEFLEX [Suspect]
     Active Substance: CEPHALEXIN
     Indication: URINARY TRACT INFECTION
     Route: 048
     Dates: start: 20200805
  2. PLAN B [Suspect]
     Active Substance: LEVONORGESTREL
     Dates: start: 20200805

REACTIONS (5)
  - Abdominal pain [Unknown]
  - Vaginal haemorrhage [Unknown]
  - Abdominal pain upper [Unknown]
  - Abdominal distension [Unknown]
  - Eructation [Unknown]

NARRATIVE: CASE EVENT DATE: 20200805
